FAERS Safety Report 16825154 (Version 1)
Quarter: 2019Q3

REPORT INFORMATION
  Report Type: Spontaneous
  Country: LT (occurrence: LT)
  Receive Date: 20190919
  Receipt Date: 20190919
  Transmission Date: 20191005
  Serious: Yes (Other)
  Sender: FDA-Public Use
  Company Number: LT-TEVA-2019-LT-1108093

PATIENT
  Age: 51 Year
  Sex: Female
  Weight: 98 kg

DRUGS (23)
  1. FENTANYL. [Concomitant]
     Active Substance: FENTANYL
     Indication: PRODUCT USED FOR UNKNOWN INDICATION
     Dosage: 50MCG
     Route: 065
  2. CARBOPLATIN. [Suspect]
     Active Substance: CARBOPLATIN
     Indication: BRCA1 GENE MUTATION
     Dosage: 6 CYCLES, STABILE DISEASE, 1 CYCLICAL/ 109 DAYS
     Route: 065
     Dates: start: 20100222, end: 20100611
  3. CARBOPLATIN. [Suspect]
     Active Substance: CARBOPLATIN
     Indication: OVARIAN EPITHELIAL CANCER STAGE I
     Dosage: 2 CYCLES, 1 CYCLICAL/ 21 DAYS
     Route: 065
     Dates: start: 20100709, end: 20100730
  4. CARBOPLATIN. [Suspect]
     Active Substance: CARBOPLATIN
     Dosage: 2 CYCLES, 1 CYCLICAL
     Route: 065
     Dates: start: 201110
  5. CISPLATIN. [Suspect]
     Active Substance: CISPLATIN
     Indication: OVARIAN EPITHELIAL CANCER STAGE I
     Dosage: 6 CYCLES, 1 CYCLICAL/ 123 DAYS
     Route: 065
     Dates: start: 20090611, end: 20091012
  6. ANASTROZOLE. [Suspect]
     Active Substance: ANASTROZOLE
     Indication: OVARIAN EPITHELIAL CANCER STAGE I
     Route: 065
  7. PLD [Suspect]
     Active Substance: DOXORUBICIN HYDROCHLORIDE
     Indication: OVARIAN EPITHELIAL CANCER STAGE I
  8. ISOPTIN [Concomitant]
     Active Substance: VERAPAMIL HYDROCHLORIDE
     Indication: PRODUCT USED FOR UNKNOWN INDICATION
     Dosage: 120MG
     Route: 065
  9. CARBOPLATIN. [Suspect]
     Active Substance: CARBOPLATIN
     Dosage: 6CYCLES, 1 CYCLICAL/ 140 DAYS
     Route: 065
     Dates: start: 20131120, end: 20140409
  10. GEMCITABINE. [Suspect]
     Active Substance: GEMCITABINE
     Indication: BRCA1 GENE MUTATION
     Dosage: 6CYCLES, 1 CYCLICAL/ 179 DAYS
     Route: 065
     Dates: start: 20170220, end: 20170818
  11. ANASTROZOLE. [Suspect]
     Active Substance: ANASTROZOLE
     Indication: BRCA1 GENE MUTATION
     Dosage: 135 DAYS
     Route: 065
     Dates: start: 20181010, end: 20190222
  12. CISPLATIN. [Suspect]
     Active Substance: CISPLATIN
     Indication: BRCA1 GENE MUTATION
  13. PACLITAXEL. [Suspect]
     Active Substance: PACLITAXEL
     Indication: OVARIAN EPITHELIAL CANCER STAGE I
     Dosage: 2 CYCLES, 1 CYCLICAL / 21 DAYS
     Route: 065
     Dates: start: 20100709, end: 20100730
  14. DEXAMETHASONE. [Concomitant]
     Active Substance: DEXAMETHASONE
     Indication: PRODUCT USED FOR UNKNOWN INDICATION
     Route: 065
  15. LORAZEPAM. [Concomitant]
     Active Substance: LORAZEPAM
     Indication: PRODUCT USED FOR UNKNOWN INDICATION
     Dosage: 2.5MG
     Route: 065
  16. PACLITAXEL. [Suspect]
     Active Substance: PACLITAXEL
     Indication: BRCA1 GENE MUTATION
     Dosage: 6 CYCLES, STABILE DISEASE, 1 CYCLICAL / 99 DAYS
     Route: 065
     Dates: start: 20100222, end: 20100601
  17. PLD [Suspect]
     Active Substance: DOXORUBICIN HYDROCHLORIDE
     Indication: BRCA1 GENE MUTATION
     Dosage: 6 CYCLES
     Route: 065
     Dates: start: 20180223, end: 20181009
  18. ENDOXAN 1 G MILTELIAI INJEKCINIAM TIRPALUI [Suspect]
     Active Substance: CYCLOPHOSPHAMIDE
     Indication: BRCA1 GENE MUTATION
     Dosage: 6 CYCLES, 1 CYCLICAL/ 123 DAYS
     Route: 065
     Dates: start: 20090611, end: 20091012
  19. CARBOPLATIN. [Suspect]
     Active Substance: CARBOPLATIN
     Dosage: 6 CYCLES, 1 CYCLICAL/ 228 DAYS
     Route: 065
     Dates: start: 20180223, end: 20181009
  20. CARBOPLATIN. [Suspect]
     Active Substance: CARBOPLATIN
     Dosage: 6CYCLES, 1 CYCLICAL/ 179 DAYS
     Route: 065
     Dates: start: 20170220, end: 20170818
  21. GEMCITABINE. [Suspect]
     Active Substance: GEMCITABINE
     Indication: OVARIAN EPITHELIAL CANCER STAGE I
     Route: 065
  22. ENDOXAN 1 G MILTELIAI INJEKCINIAM TIRPALUI [Suspect]
     Active Substance: CYCLOPHOSPHAMIDE
     Indication: OVARIAN EPITHELIAL CANCER STAGE I
     Dosage: 2 CYCLES, 1 CYCLICAL
     Route: 065
     Dates: start: 201110
  23. GABAPENTIN. [Concomitant]
     Active Substance: GABAPENTIN
     Indication: PRODUCT USED FOR UNKNOWN INDICATION
     Dosage: 300MG
     Route: 065

REACTIONS (8)
  - Metastases to retroperitoneum [Unknown]
  - Anaemia [Unknown]
  - Neutropenia [Unknown]
  - Metastases to lymph nodes [Unknown]
  - Metastases to lymph nodes [Unknown]
  - Metastases to central nervous system [Unknown]
  - Thrombocytopenia [Unknown]
  - Bone marrow failure [Unknown]

NARRATIVE: CASE EVENT DATE: 201110
